FAERS Safety Report 23445799 (Version 1)
Quarter: 2024Q1

REPORT INFORMATION
  Report Type: Spontaneous
  Country: CN (occurrence: CN)
  Receive Date: 20240126
  Receipt Date: 20240126
  Transmission Date: 20240410
  Serious: Yes (Hospitalization)
  Sender: FDA-Public Use
  Company Number: CN-GLAXOSMITHKLINE-CN2024APC009631

PATIENT

DRUGS (1)
  1. SERETIDE [Suspect]
     Active Substance: FLUTICASONE PROPIONATE\SALMETEROL XINAFOATE
     Indication: Chronic obstructive pulmonary disease
     Dosage: 250 ?L, BID
     Route: 055
     Dates: start: 20180821, end: 20240115

REACTIONS (10)
  - Chronic obstructive pulmonary disease [Recovering/Resolving]
  - Oral fungal infection [Recovering/Resolving]
  - Cough [Recovering/Resolving]
  - Dyspnoea [Recovering/Resolving]
  - Sputum discoloured [Recovering/Resolving]
  - Nasopharyngitis [Recovering/Resolving]
  - Sputum retention [Recovering/Resolving]
  - Dyspnoea exertional [Recovered/Resolved]
  - Productive cough [Recovering/Resolving]
  - Drug ineffective [Unknown]

NARRATIVE: CASE EVENT DATE: 20240108
